FAERS Safety Report 15569500 (Version 1)
Quarter: 2018Q4

REPORT INFORMATION
  Report Type: Spontaneous
  Country: RU (occurrence: RU)
  Receive Date: 20181031
  Receipt Date: 20181031
  Transmission Date: 20190205
  Serious: Yes (Hospitalization, Other)
  Sender: FDA-Public Use
  Company Number: RU-ADIENNEP-2018AD000532

PATIENT
  Age: 1 Year
  Sex: Female

DRUGS (4)
  1. TEPADINA [Suspect]
     Active Substance: THIOTEPA
     Dosage: 100 MG DAILY
     Route: 042
  2. TREOSULFAN MEDAC [Concomitant]
     Active Substance: TREOSULFAN
     Dosage: 4.6 G DAILY
     Route: 042
  3. FLUDARABINE PHOSPHATE. [Suspect]
     Active Substance: FLUDARABINE PHOSPHATE
     Dosage: 13.8 MG DAILY
     Route: 042
  4. MYLERAN [Suspect]
     Active Substance: BUSULFAN
     Route: 042

REACTIONS (2)
  - Enterocolitis [Recovered/Resolved]
  - Gastrointestinal infection [Recovered/Resolved]

NARRATIVE: CASE EVENT DATE: 20180718
